FAERS Safety Report 21574437 (Version 2)
Quarter: 2022Q4

REPORT INFORMATION
  Report Type: Report from Study
  Country: US (occurrence: US)
  Receive Date: 20221109
  Receipt Date: 20221121
  Transmission Date: 20230113
  Serious: No
  Sender: FDA-Public Use
  Company Number: US-SANOFI-01351838

PATIENT
  Age: 77 Year
  Sex: Female

DRUGS (6)
  1. DUPILUMAB [Suspect]
     Active Substance: DUPILUMAB
     Indication: Nasal polyps
     Dosage: 300 MG, 1X
     Route: 058
     Dates: start: 20221001, end: 20221001
  2. DUPILUMAB [Suspect]
     Active Substance: DUPILUMAB
     Dosage: 300 MG, QOW
     Route: 058
     Dates: start: 202210
  3. SINGULAIR [Concomitant]
     Active Substance: MONTELUKAST SODIUM
     Dosage: NIGHTLY
  4. ROSUVASTATIN [Concomitant]
     Active Substance: ROSUVASTATIN
  5. LOSARTAN [Concomitant]
     Active Substance: LOSARTAN
  6. CARVEDILOL [Concomitant]
     Active Substance: CARVEDILOL

REACTIONS (13)
  - Ear pruritus [Not Recovered/Not Resolved]
  - Throat irritation [Not Recovered/Not Resolved]
  - Nasal congestion [Unknown]
  - Ear pain [Unknown]
  - Eye discharge [Unknown]
  - Asthenia [Unknown]
  - Cough [Unknown]
  - Pain [Unknown]
  - Discomfort [Unknown]
  - Ocular hyperaemia [Not Recovered/Not Resolved]
  - Insomnia [Unknown]
  - Oropharyngeal pain [Unknown]
  - Eye pruritus [Not Recovered/Not Resolved]
